FAERS Safety Report 5158909-X (Version None)
Quarter: 2006Q4

REPORT INFORMATION
  Report Type: 
  Country: None (occurrence: None)
  Receive Date: 20061117
  Receipt Date: 20061024
  Transmission Date: 20070319
  Serious: Yes (Death, Hospitalization)
  Sender: FDA-Public Use
  Company Number: DSA_28911_2006

PATIENT
  Age: 64 Year
  Sex: Male

DRUGS (1)
  1. NIFEDIPINE [Suspect]
     Dosage: DF PO
     Route: 048

REACTIONS (9)
  - BLOOD CREATININE INCREASED [None]
  - BLOOD PRESSURE DECREASED [None]
  - BLOOD UREA INCREASED [None]
  - CARDIAC ARREST [None]
  - COMPLETED SUICIDE [None]
  - DIZZINESS [None]
  - POISONING [None]
  - SUPRAVENTRICULAR EXTRASYSTOLES [None]
  - VENTRICULAR EXTRASYSTOLES [None]
